FAERS Safety Report 6688459-0 (Version None)
Quarter: 2010Q2

REPORT INFORMATION
  Report Type: 
  Country: None (occurrence: None)
  Receive Date: 20100420
  Receipt Date: 20100409
  Transmission Date: 20101027
  Serious: Yes (Hospitalization)
  Sender: FDA-Public Use
  Company Number: US-AMGEN-QUU397577

PATIENT
  Sex: Female
  Weight: 81.3 kg

DRUGS (30)
  1. ENBREL [Suspect]
     Indication: RHEUMATOID ARTHRITIS
     Route: 058
     Dates: start: 19990526, end: 20090707
  2. MINOCYCLINE HCL [Concomitant]
     Dates: start: 19940712, end: 19950307
  3. CELEBREX [Concomitant]
     Dates: start: 19990226, end: 20070928
  4. TYLENOL-500 [Concomitant]
     Dates: start: 20080521
  5. CIPRO [Concomitant]
     Dates: start: 20071221, end: 20080623
  6. THEO-DUR [Concomitant]
     Dates: start: 19960126, end: 20050307
  7. MYOCHRYSINE [Concomitant]
     Dates: start: 19921118, end: 19930726
  8. SOLGANAL [Concomitant]
     Dates: start: 19930816, end: 19960220
  9. LASIX [Concomitant]
     Dates: start: 20091030
  10. SLOW-MAG [Concomitant]
     Dates: start: 20090826
  11. MAXIDEX [Concomitant]
     Dates: start: 20090826, end: 20091030
  12. CALCIUM [Concomitant]
     Dates: start: 19950307
  13. MULTI-VITAMINS [Concomitant]
     Dates: start: 19941216
  14. GLUCOSAMINE [Concomitant]
     Dates: start: 19991220
  15. ARAVA [Concomitant]
     Dates: start: 20051230, end: 20090505
  16. VITAMIN C [Concomitant]
     Dates: start: 20081201
  17. ASPIRIN [Concomitant]
     Dates: start: 20090826
  18. HYDROCHLOROTHIAZIDE [Concomitant]
     Dates: start: 20040829, end: 20061019
  19. ZETIA [Concomitant]
     Dates: start: 20061019, end: 20080121
  20. SYNTHROID [Concomitant]
     Dates: start: 20010606
  21. ADVAIR DISKUS 100/50 [Concomitant]
     Dates: start: 20050120
  22. ALBUTEROL [Concomitant]
     Dates: start: 20051230
  23. EVISTA [Concomitant]
     Dates: start: 20091220
  24. CELEBREX [Concomitant]
     Dates: start: 20080404, end: 20080521
  25. BENADRYL [Concomitant]
     Dates: start: 20080725
  26. NIFEDIPINE [Concomitant]
     Dates: start: 20090107, end: 20100120
  27. PLAVIX [Concomitant]
     Dates: start: 20090826
  28. LIPITOR [Concomitant]
     Dates: start: 20090826
  29. RITUXAN [Concomitant]
     Dates: start: 20090826
  30. PREDNISONE [Concomitant]
     Dates: start: 20060101, end: 20100101

REACTIONS (2)
  - INTERVERTEBRAL DISC PROTRUSION [None]
  - NEUTROPENIA [None]
